FAERS Safety Report 6180183-6 (Version None)
Quarter: 2009Q2

REPORT INFORMATION
  Report Type: 
  Country: None (occurrence: None)
  Receive Date: 20090501
  Receipt Date: 20090418
  Transmission Date: 20091009
  Serious: Yes (Other)
  Sender: FDA-Public Use
  Company Number: B0571540A

PATIENT
  Age: 52 Year
  Sex: Male

DRUGS (2)
  1. ALLOPURINOL [Suspect]
  2. AMOXICILLIN TRIHYDRATE (FORMUTIAON UNKNOWN) (GENERIC) (AMOXICILLIN) [Concomitant]

REACTIONS (2)
  - CYTOLYTIC HEPATITIS [None]
  - DRUG RASH WITH EOSINOPHILIA AND SYSTEMIC SYMPTOMS [None]
